FAERS Safety Report 4536933-5 (Version None)
Quarter: 2004Q4

REPORT INFORMATION
  Report Type: 
  Country: None (occurrence: None)
  Receive Date: 20041220
  Receipt Date: 20041213
  Transmission Date: 20050328
  Serious: No
  Sender: FDA-Public Use
  Company Number: VIS10179.2004

PATIENT
  Age: 29 Year
  Sex: Female
  Weight: 53.5244 kg

DRUGS (4)
  1. VISICOL [Suspect]
     Indication: COLONOSCOPY
     Dosage: 42 G ONCE PO
     Route: 048
     Dates: start: 20041202, end: 20041202
  2. DULCOLAX [Suspect]
     Indication: COLONOSCOPY
  3. ASACOL [Concomitant]
  4. ENTOCORT [Concomitant]

REACTIONS (6)
  - DEHYDRATION [None]
  - EXCESSIVE EXERCISE [None]
  - HYPOCALCAEMIA [None]
  - HYPOKALAEMIA [None]
  - PARATHYROID DISORDER [None]
  - TETANY [None]
